FAERS Safety Report 24279860 (Version 2)
Quarter: 2024Q4

REPORT INFORMATION
  Report Type: Report from Study
  Country: CA (occurrence: CA)
  Receive Date: 20240904
  Receipt Date: 20241129
  Transmission Date: 20250114
  Serious: Yes (Other)
  Sender: EMD SERONO INC
  Company Number: CA-Merck Healthcare KGaA-2024046289

PATIENT
  Sex: Female

DRUGS (1)
  1. MAVENCLAD [Suspect]
     Active Substance: CLADRIBINE
     Indication: Multiple sclerosis
     Dosage: YEAR ONE THERAPY

REACTIONS (3)
  - Lower respiratory tract infection [Recovering/Resolving]
  - Nasopharyngitis [Recovering/Resolving]
  - Fatigue [Unknown]
